FAERS Safety Report 19025193 (Version 4)
Quarter: 2021Q3

REPORT INFORMATION
  Report Type: Report from Study
  Country: ES (occurrence: ES)
  Receive Date: 20210318
  Receipt Date: 20210922
  Transmission Date: 20211014
  Serious: Yes (Hospitalization, Other)
  Sender: FDA-Public Use
  Company Number: ES-VELOXIS PHARMACEUTICALS-2021VELES-000209

PATIENT
  Age: 71 Year
  Sex: Male
  Weight: 87.3 kg

DRUGS (5)
  1. ENVARSUS XR [Suspect]
     Active Substance: TACROLIMUS
     Indication: PROPHYLAXIS AGAINST TRANSPLANT REJECTION
     Dosage: 3 UNK, QD
     Route: 048
     Dates: start: 20190812
  2. ENVARSUS XR [Suspect]
     Active Substance: TACROLIMUS
     Dosage: 2 UNK, QD
     Route: 048
     Dates: start: 20191112, end: 20200303
  3. MYFORTIC [Suspect]
     Active Substance: MYCOPHENOLATE SODIUM
     Indication: PROPHYLAXIS AGAINST TRANSPLANT REJECTION
     Dosage: 720 MILLIGRAM, QD
     Dates: start: 20190624
  4. ENVARSUS XR [Suspect]
     Active Substance: TACROLIMUS
     Dosage: 1 UNK, QD
     Route: 048
     Dates: start: 20190624, end: 20191112
  5. PREDNISONA [Suspect]
     Active Substance: PREDNISONE
     Indication: PROPHYLAXIS AGAINST TRANSPLANT REJECTION
     Dosage: 20 MILLIGRAM, QD
     Dates: start: 20190624

REACTIONS (4)
  - Sepsis [Recovered/Resolved]
  - Urosepsis [Recovered/Resolved]
  - BK virus infection [Recovered/Resolved]
  - Urinary incontinence [Recovered/Resolved]

NARRATIVE: CASE EVENT DATE: 20190723
